FAERS Safety Report 9650432 (Version 9)
Quarter: 2014Q3

REPORT INFORMATION
  Report Type: Report from Study
  Country: DE (occurrence: DE)
  Receive Date: 20131028
  Receipt Date: 20140828
  Transmission Date: 20150326
  Serious: Yes (Hospitalization)
  Sender: FDA-Public Use
  Company Number: DE-ROCHE-1260741

PATIENT
  Age: 41 Year
  Sex: Female

DRUGS (10)
  1. PERTUZUMAB [Suspect]
     Active Substance: PERTUZUMAB
     Indication: BREAST CANCER
     Dosage: LOADING DOSE AS PER PROTOCOL.
     Route: 042
     Dates: start: 20130730, end: 20130730
  2. TRASTUZUMAB [Suspect]
     Active Substance: TRASTUZUMAB
     Dosage: MAINTENENCE DOSE AS PER PROTOCOL.?DATE OF LAST DOSE PRIOR TO SAE: 30/JUL/2013.?DATE OF LAST DOSE PRI
     Route: 042
     Dates: start: 20130820
  3. PERTUZUMAB [Suspect]
     Active Substance: PERTUZUMAB
     Dosage: MAINTENENCE DOSE AS PER PROTOCOL. ?DATE OF LAST DOSE PRIOR TO SAE: 30/JUL/2013.?DATE OF LAST DOSE PR
     Route: 042
     Dates: start: 20130820
  4. TRASTUZUMAB [Suspect]
     Active Substance: TRASTUZUMAB
     Indication: BREAST CANCER
     Dosage: LOADING DOSE AS PER PROTOCOL.
     Route: 042
     Dates: start: 20130730, end: 20130730
  5. PACLITAXEL ALBUMIN [Suspect]
     Active Substance: PACLITAXEL
     Indication: BREAST CANCER
     Dosage: LAST DOSE PRIOR TO SAE: 29/JUL/2013.?DATE OF LAST DOSE PRIOR TO INFECTION OF THE LEFT BREAST IMPLANT
     Route: 042
     Dates: start: 20130729
  6. GABAPENTIN. [Concomitant]
     Active Substance: GABAPENTIN
     Route: 065
     Dates: start: 20121115, end: 20131117
  7. AMOXI-CLAVULAN [Concomitant]
     Dosage: TOTAL DAILY DOSE: 875/125 MG
     Route: 065
     Dates: start: 20130927
  8. TILIDIN [Concomitant]
     Active Substance: NALOXONE HYDROCHLORIDE\TILIDINE HYDROCHLORIDE
     Route: 065
     Dates: start: 20121115, end: 20130906
  9. GABAPENTIN. [Concomitant]
     Active Substance: GABAPENTIN
     Route: 065
     Dates: start: 20131119
  10. CLEXANE [Concomitant]
     Active Substance: ENOXAPARIN SODIUM
     Route: 065
     Dates: start: 20130729

REACTIONS (1)
  - Device related infection [Recovered/Resolved]

NARRATIVE: CASE EVENT DATE: 20130805
